FAERS Safety Report 6447053-7 (Version None)
Quarter: 2009Q4

REPORT INFORMATION
  Report Type: 
  Country: None (occurrence: None)
  Receive Date: 20091119
  Receipt Date: 20091111
  Transmission Date: 20100525
  Serious: Yes (Hospitalization)
  Sender: FDA-Public Use
  Company Number: GXKR2009IT12310

PATIENT
  Age: 77 Year
  Sex: Male

DRUGS (5)
  1. CLONIDINE (NGX) [Suspect]
     Indication: SPINAL ANAESTHESIA
     Dosage: 30 UG, UNK
     Route: 053
  2. ROPIVACAINE (NGX) [Suspect]
     Indication: SPINAL ANAESTHESIA
     Dosage: 25 ML IN TOTAL
     Route: 053
  3. ROPIVACAINE (NGX) [Suspect]
     Indication: POSTOPERATIVE ANALGESIA
     Dosage: 2 MG/ML AT 8ML/H
  4. ENOXAPARIN SODIUM (NGX) [Suspect]
     Indication: DEEP VEIN THROMBOSIS
     Dosage: 4000 IU, BID
     Route: 065
  5. ENOXAPARIN SODIUM (NGX) [Suspect]
     Dosage: 4000 IU, QD
     Route: 065

REACTIONS (2)
  - ABDOMINAL PAIN LOWER [None]
  - RETROPERITONEAL HAEMATOMA [None]
